FAERS Safety Report 7952811-3 (Version None)
Quarter: 2011Q4

REPORT INFORMATION
  Report Type: 
  Country: None (occurrence: None)
  Receive Date: 20111129
  Receipt Date: 20111121
  Transmission Date: 20120403
  Serious: Yes (Disabling)
  Sender: FDA-Public Use
  Company Number: OSCN-NO-1111S-0235

PATIENT
  Age: 56 Year

DRUGS (1)
  1. OMNISCAN [Suspect]
     Indication: MULTIPLE MYELOMA
     Dosage: 32 ML, SINGLE DOSE, INTRAVENOUS
     Route: 042
     Dates: start: 20051207, end: 20051207

REACTIONS (2)
  - IMMOBILE [None]
  - MUSCULOSKELETAL STIFFNESS [None]
